FAERS Safety Report 6571984-0 (Version None)
Quarter: 2010Q1

REPORT INFORMATION
  Report Type: 
  Country: None (occurrence: None)
  Receive Date: 20100205
  Receipt Date: 20100125
  Transmission Date: 20100710
  Serious: Yes (Hospitalization, Other)
  Sender: FDA-Public Use
  Company Number: US-ELI_LILLY_AND_COMPANY-US201001005558

PATIENT
  Sex: Female

DRUGS (13)
  1. CYMBALTA [Suspect]
     Indication: DEPRESSION
     Dosage: 60 MG, DAILY (1/D)
     Dates: start: 20091001, end: 20100121
  2. RANEXA [Concomitant]
  3. SYNTHROID [Concomitant]
     Dosage: 88 UG, UNK
  4. ISORDIL [Concomitant]
     Dosage: 20 MG, UNK
  5. HYDRALAZINE [Concomitant]
     Dosage: 25 MG, UNK
  6. LASIX [Concomitant]
     Dosage: 40 MG, UNK
  7. COREG [Concomitant]
     Dosage: 25 MG, UNK
  8. ASPIRIN [Concomitant]
     Dosage: 325 MG, UNK
  9. NORVASC [Concomitant]
     Dosage: 5 MG, UNK
  10. ELAVIL [Concomitant]
     Dosage: 25 MG, UNK
  11. ALLOPURINOL [Concomitant]
     Dosage: 100 MG, UNK
  12. COMBIVENT [Concomitant]
  13. ALBUTEROL SULFATE AUTOHALER [Concomitant]

REACTIONS (4)
  - BLOOD POTASSIUM INCREASED [None]
  - CHEST PAIN [None]
  - RENAL FAILURE ACUTE [None]
  - TROPONIN INCREASED [None]
